FAERS Safety Report 18573838 (Version 1)
Quarter: 2020Q4

REPORT INFORMATION
  Report Type: Spontaneous
  Country: US (occurrence: US)
  Receive Date: 20201202
  Receipt Date: 20201202
  Transmission Date: 20210114
  Serious: Yes (Hospitalization)
  Sender: FDA-Public Use
  Company Number: None

PATIENT
  Age: 57 Year
  Sex: Male
  Weight: 74.39 kg

DRUGS (2)
  1. BUPROPION (BUPROPION HCL) [Suspect]
     Active Substance: BUPROPION HYDROCHLORIDE
     Indication: DEPRESSION
     Route: 048
     Dates: start: 20200603, end: 20200609
  2. BUPROPION (BUPROPION HCL) [Suspect]
     Active Substance: BUPROPION HYDROCHLORIDE
     Indication: SUICIDAL IDEATION
     Route: 048
     Dates: start: 20200603, end: 20200609

REACTIONS (10)
  - Insomnia [None]
  - Crying [None]
  - Suicidal ideation [None]
  - Headache [None]
  - Anxiety [None]
  - Agitation [None]
  - Anger [None]
  - Hot flush [None]
  - Depression [None]
  - Emotional disorder [None]

NARRATIVE: CASE EVENT DATE: 20200608
